FAERS Safety Report 9852223 (Version 2)
Quarter: 2014Q2

REPORT INFORMATION
  Report Type: Spontaneous
  Country: US (occurrence: None)
  Receive Date: 20140127
  Receipt Date: 20140404
  Transmission Date: 20141212
  Serious: Yes (Hospitalization)
  Sender: FDA-Public Use
  Company Number: 2014-US-000504

PATIENT
  Age: 37 Year
  Sex: Female
  Weight: 87.1 kg

DRUGS (5)
  1. XYREM [Suspect]
     Indication: NARCOLEPSY
     Route: 048
     Dates: start: 201104, end: 201104
  2. XYREM [Suspect]
     Indication: SOMNOLENCE
     Route: 048
     Dates: start: 201104, end: 201104
  3. XYREM [Suspect]
     Indication: CATAPLEXY
     Route: 048
     Dates: start: 201104, end: 201104
  4. FLONASE (FLUTICASONE PROPIONATE) [Concomitant]
  5. COMPAZINE (PROCHIORPERAZINE EDISYLATE) [Concomitant]

REACTIONS (6)
  - Feeding tube complication [None]
  - Vaginal infection [None]
  - Cellulitis [None]
  - Bacterial test positive [None]
  - No therapeutic response [None]
  - Unevaluable event [None]
